FAERS Safety Report 7380546-7 (Version None)
Quarter: 2011Q1

REPORT INFORMATION
  Report Type: 
  Country: None (occurrence: None)
  Receive Date: 20110325
  Receipt Date: 20110325
  Transmission Date: 20110831
  Serious: Yes (Other)
  Sender: FDA-Public Use
  Company Number: None

PATIENT
  Age: 25 Year
  Sex: Female
  Weight: 72.5755 kg

DRUGS (1)
  1. MICONAZOLE [Suspect]
     Indication: VULVOVAGINAL MYCOTIC INFECTION
     Dosage: 1 200MG SUPPOSITORY 1/DAY VAG
     Route: 067
     Dates: start: 20110322, end: 20110324

REACTIONS (3)
  - DIARRHOEA [None]
  - ASTHENIA [None]
  - FATIGUE [None]
